FAERS Safety Report 5454823-0 (Version None)
Quarter: 2007Q3

REPORT INFORMATION
  Report Type: 
  Country: None (occurrence: None)
  Receive Date: 20070917
  Receipt Date: 20070228
  Transmission Date: 20080115
  Serious: Yes (Hospitalization, Other)
  Sender: FDA-Public Use
  Company Number: US-ASTRAZENECA-2006UW17480

PATIENT
  Sex: Female
  Weight: 69.1 kg

DRUGS (7)
  1. SEROQUEL [Suspect]
     Indication: SCHIZOPHRENIA
     Route: 048
     Dates: start: 19980515, end: 20000101
  2. SEROQUEL [Suspect]
     Indication: DEPRESSION
     Route: 048
     Dates: start: 19980515, end: 20000101
  3. SEROQUEL [Suspect]
     Route: 048
     Dates: start: 20000101, end: 20060301
  4. SEROQUEL [Suspect]
     Route: 048
     Dates: start: 20000101, end: 20060301
  5. NAVANE [Concomitant]
     Dates: start: 20040101
  6. RISPERDAL [Concomitant]
     Dates: start: 20020101, end: 20060101
  7. ZYPREXA [Concomitant]
     Dates: start: 20040101, end: 20060101

REACTIONS (4)
  - CONVULSION [None]
  - DIABETES MELLITUS [None]
  - INCREASED APPETITE [None]
  - KETOACIDOSIS [None]
